FAERS Safety Report 11638065 (Version 4)
Quarter: 2016Q3

REPORT INFORMATION
  Report Type: Report from Study
  Country: CA (occurrence: CA)
  Receive Date: 20151016
  Receipt Date: 20160902
  Transmission Date: 20161109
  Serious: Yes (Death, Other)
  Sender: FDA-Public Use
  Company Number: CA-BAYER-2015-439076

PATIENT
  Age: 60 Year
  Sex: Male

DRUGS (10)
  1. FLOMAX (TAMSULOSIN) [Concomitant]
  2. INSULIN [Concomitant]
     Active Substance: INSULIN NOS
  3. NORVASC [Concomitant]
     Active Substance: AMLODIPINE BESYLATE
  4. DIABETA [Concomitant]
     Active Substance: GLYBURIDE
  5. FRAGMIN [Concomitant]
     Active Substance: DALTEPARIN SODIUM
  6. COVERSYL [Concomitant]
     Active Substance: PERINDOPRIL
  7. GLUCOPHAGE [Concomitant]
     Active Substance: METFORMIN HYDROCHLORIDE
  8. STIVARGA [Suspect]
     Active Substance: REGORAFENIB
     Indication: COLORECTAL CANCER METASTATIC
     Dosage: 160 MG, QD
     Route: 048
     Dates: start: 20150929
  9. AVODART [Concomitant]
     Active Substance: DUTASTERIDE
  10. LIPITOR [Concomitant]
     Active Substance: ATORVASTATIN CALCIUM

REACTIONS (7)
  - Headache [Not Recovered/Not Resolved]
  - Abdominal pain [Not Recovered/Not Resolved]
  - Hepatic pain [None]
  - Dyspnoea [Not Recovered/Not Resolved]
  - Death [Fatal]
  - Blood pressure increased [Not Recovered/Not Resolved]
  - Asthenia [Not Recovered/Not Resolved]

NARRATIVE: CASE EVENT DATE: 2015
